FAERS Safety Report 7568651-3 (Version None)
Quarter: 2011Q2

REPORT INFORMATION
  Report Type: 
  Country: None (occurrence: None)
  Receive Date: 20110617
  Receipt Date: 20110606
  Transmission Date: 20111010
  Serious: Yes (Other)
  Sender: FDA-Public Use
  Company Number: PHHY2011JP15231

PATIENT
  Age: 60 Year
  Sex: Male

DRUGS (4)
  1. VISUDYNE [Suspect]
     Indication: CHOROIDAL NEOVASCULARISATION
     Dosage: SEVERE MYOPIA WITH CHOROIDAL NEOVASCULARIZATION
     Dates: start: 20090220, end: 20090220
  2. LUCENTIS [Suspect]
     Indication: MYOPIA
     Dates: start: 20090615, end: 20090615
  3. BEVACUZIMAB [Suspect]
     Indication: MYOPIA
     Dates: start: 20090220, end: 20090220
  4. BEVACUZIMAB [Suspect]
     Indication: CHOROIDAL NEOVASCULARISATION
     Dates: start: 20090220, end: 20090220

REACTIONS (1)
  - MACULAR HOLE [None]
